FAERS Safety Report 13185944 (Version 3)
Quarter: 2017Q1

REPORT INFORMATION
  Report Type: Spontaneous
  Country: US (occurrence: US)
  Receive Date: 20170203
  Receipt Date: 20170309
  Transmission Date: 20170428
  Serious: Yes (Hospitalization)
  Sender: FDA-Public Use
  Company Number: US-SA-2017SA015061

PATIENT
  Age: 64 Year
  Sex: Female

DRUGS (4)
  1. ADVAIR HFA [Concomitant]
     Active Substance: FLUTICASONE PROPIONATE\SALMETEROL XINAFOATE
     Indication: ASTHMA
  2. CORTIZONE 10 [Suspect]
     Active Substance: HYDROCORTISONE
     Indication: RASH PRURITIC
     Route: 065
     Dates: start: 20161216, end: 20161216
  3. GOLD BOND RAPID RELIEF ANTI-ITCH CREAM [Suspect]
     Active Substance: MENTHOL\PRAMOXINE HYDROCHLORIDE
     Route: 065
  4. PROVENTIL [Concomitant]
     Active Substance: ALBUTEROL
     Indication: ASTHMA

REACTIONS (3)
  - Pain [Recovering/Resolving]
  - Erythema [Recovering/Resolving]
  - Burning sensation [Recovered/Resolved]

NARRATIVE: CASE EVENT DATE: 20161216
